FAERS Safety Report 12944082 (Version 1)
Quarter: 2016Q4

REPORT INFORMATION
  Report Type: Spontaneous
  Country: US (occurrence: US)
  Receive Date: 20161115
  Receipt Date: 20161115
  Transmission Date: 20170207
  Serious: Yes (Other)
  Sender: FDA-Public Use
  Company Number: US-ROCHE-1711411

PATIENT
  Sex: Female

DRUGS (9)
  1. LETROZOLE. [Concomitant]
     Active Substance: LETROZOLE
  2. XELODA [Concomitant]
     Active Substance: CAPECITABINE
     Indication: BREAST CANCER METASTATIC
  3. TAMOXIFEN [Concomitant]
     Active Substance: TAMOXIFEN
     Indication: BREAST CANCER METASTATIC
  4. FASLODEX [Concomitant]
     Active Substance: FULVESTRANT
     Indication: BREAST CANCER METASTATIC
  5. HERCEPTIN [Suspect]
     Active Substance: TRASTUZUMAB
     Indication: BREAST CANCER METASTATIC
     Route: 065
  6. ARIMIDEX [Concomitant]
     Active Substance: ANASTROZOLE
     Indication: BREAST CANCER METASTATIC
  7. IBRANCE [Concomitant]
     Active Substance: PALBOCICLIB
     Indication: BREAST CANCER METASTATIC
     Dosage: 1 TABLET FOR 3WEEKS ON FOLLOWED BY 1 WEEK OFF.
     Route: 048
  8. AROMASIN [Concomitant]
     Active Substance: EXEMESTANE
     Indication: BREAST CANCER METASTATIC
  9. TYKERB [Concomitant]
     Active Substance: LAPATINIB DITOSYLATE
     Indication: BREAST CANCER METASTATIC

REACTIONS (1)
  - Hypersensitivity [Unknown]
